FAERS Safety Report 13081953 (Version 2)
Quarter: 2017Q1

REPORT INFORMATION
  Report Type: Spontaneous
  Country: SA (occurrence: SA)
  Receive Date: 20170103
  Receipt Date: 20170123
  Transmission Date: 20170428
  Serious: Yes (Hospitalization)
  Sender: FDA-Public Use
  Company Number: SA-BAYER-2016-244708

PATIENT
  Age: 45 Year
  Sex: Male

DRUGS (1)
  1. LEVITRA [Suspect]
     Active Substance: VARDENAFIL HYDROCHLORIDE TRIHYDRATE
     Dosage: 10 MG, UNK
     Route: 048
     Dates: start: 20161122

REACTIONS (6)
  - Dizziness [None]
  - Back pain [None]
  - Male sexual dysfunction [None]
  - Somnolence [None]
  - Hyperchlorhydria [None]
  - Dyspepsia [None]

NARRATIVE: CASE EVENT DATE: 20161122
